FAERS Safety Report 4646195-6 (Version None)
Quarter: 2005Q2

REPORT INFORMATION
  Report Type: 
  Country: None (occurrence: None)
  Receive Date: 20050425
  Receipt Date: 20050413
  Transmission Date: 20051028
  Serious: Yes (Hospitalization)
  Sender: FDA-Public Use
  Company Number: HQWYE016214APR05

PATIENT
  Age: 73 Year
  Sex: Male

DRUGS (11)
  1. PROTIUM (PANTOPRAZOLE, INJECTION) [Suspect]
     Indication: GASTROINTESTINAL HAEMORRHAGE
     Dosage: 40 MG 1X PER 1 DAY INTRAVENOUS
     Route: 042
     Dates: start: 20050112, end: 20050123
  2. DIGOXIN [Concomitant]
  3. HYDROCORTISONE [Concomitant]
  4. CO-AMILOFRUSE (AMILORIDE HYDROCHLORIDE/FUROSEMIDE) [Concomitant]
  5. VANCOMYCIN [Concomitant]
  6. LISINOPRIL [Concomitant]
  7. OMEPRAZOLE [Concomitant]
  8. PREDNISONE [Concomitant]
  9. CALCIUM (CALCIUM) [Concomitant]
  10. VITAMIN D [Concomitant]
  11. TAZOCIN (PIPERACILLIN/TAZOBACTAM) [Concomitant]

REACTIONS (1)
  - VASCULITIC RASH [None]
